FAERS Safety Report 8079078-2 (Version None)
Quarter: 2012Q1

REPORT INFORMATION
  Report Type: 
  Country: None (occurrence: None)
  Receive Date: 20120128
  Receipt Date: 20110818
  Transmission Date: 20120608
  Serious: No
  Sender: FDA-Public Use
  Company Number: US-ABBOTT-11P-163-0847678-00

PATIENT
  Age: 61 Year
  Sex: Female

DRUGS (4)
  1. UNKNOWN BLOOD PRESSURE MEDICATION [Concomitant]
     Indication: PRODUCT USED FOR UNKNOWN INDICATION
  2. UNKNOWN MEDICATION [Concomitant]
     Indication: CROHN'S DISEASE
  3. HUMIRA [Suspect]
     Indication: CROHN'S DISEASE
     Dosage: LOADING DOSE
     Dates: start: 20110809, end: 20110809
  4. HUMIRA [Suspect]

REACTIONS (5)
  - CHILLS [None]
  - EATING DISORDER [None]
  - ABDOMINAL DISCOMFORT [None]
  - BACK PAIN [None]
  - RETCHING [None]
